FAERS Safety Report 9789903 (Version 1)
Quarter: 2013Q4

REPORT INFORMATION
  Report Type: Spontaneous
  Country: US (occurrence: None)
  Receive Date: 20131230
  Receipt Date: 20131230
  Transmission Date: 20140711
  Serious: Yes (Life-Threatening)
  Sender: FDA-Public Use
  Company Number: None

PATIENT
  Age: 68 Year
  Sex: Female
  Weight: 57.15 kg

DRUGS (1)
  1. HYDROCORTISONE [Suspect]
     Indication: ADRENAL INSUFFICIENCY
     Dosage: 5 TBAS PER DAY, MORE IF NEEDED, TAKEN BY MOUTH
     Route: 048
     Dates: start: 20130410, end: 20131226

REACTIONS (18)
  - Drug ineffective [None]
  - Depression [None]
  - Flushing [None]
  - Feeling jittery [None]
  - Asthenia [None]
  - Colitis [None]
  - Visual impairment [None]
  - Weight decreased [None]
  - Suicidal ideation [None]
  - Balance disorder [None]
  - Fall [None]
  - Personality change [None]
  - Mood swings [None]
  - Thinking abnormal [None]
  - Tremor [None]
  - Crying [None]
  - Product substitution issue [None]
  - Feeling of despair [None]
